FAERS Safety Report 5878923-6 (Version None)
Quarter: 2008Q3

REPORT INFORMATION
  Report Type: 
  Country: None (occurrence: None)
  Receive Date: 20080910
  Receipt Date: 20080910
  Transmission Date: 20090109
  Serious: Yes (Hospitalization)
  Sender: FDA-Public Use
  Company Number: None

PATIENT
  Sex: Female
  Weight: 63.5 kg

DRUGS (5)
  1. TEMOZOLOMIDE [Suspect]
     Dosage: 5640 MG
  2. CLONAZEPAM [Concomitant]
  3. CODEINE SUL TAB [Concomitant]
  4. DEXAMETHASONE [Concomitant]
  5. KEPPRA [Concomitant]

REACTIONS (3)
  - HYPOAESTHESIA [None]
  - PARTIAL SEIZURES [None]
  - TREMOR [None]
